FAERS Safety Report 5610881-1 (Version None)
Quarter: 2008Q1

REPORT INFORMATION
  Report Type: 
  Country: None (occurrence: None)
  Receive Date: 20080201
  Receipt Date: 20080125
  Transmission Date: 20080703
  Serious: Yes (Hospitalization)
  Sender: FDA-Public Use
  Company Number: AU-MERCK-0801AUS00199

PATIENT
  Age: 80 Year
  Sex: Female

DRUGS (1)
  1. FOSAMAX [Suspect]
     Indication: OSTEOPOROSIS
     Route: 048

REACTIONS (6)
  - CIRCULATORY COLLAPSE [None]
  - COLONIC POLYP [None]
  - DIZZINESS [None]
  - HYPOTHYROIDISM [None]
  - NAUSEA [None]
  - PALPITATIONS [None]
